FAERS Safety Report 9943433 (Version 1)
Quarter: 2014Q1

REPORT INFORMATION
  Report Type: Spontaneous
  Country: JP (occurrence: JP)
  Receive Date: 20140303
  Receipt Date: 20140303
  Transmission Date: 20141002
  Serious: Yes (Other)
  Sender: FDA-Public Use
  Company Number: PHJP2014JP000588

PATIENT
  Sex: 0

DRUGS (1)
  1. RITALIN [Suspect]
     Dosage: UNK UKN, UNK
     Route: 048

REACTIONS (1)
  - Electrocardiogram QT prolonged [Unknown]
